FAERS Safety Report 7597230-7 (Version None)
Quarter: 2011Q3

REPORT INFORMATION
  Report Type: 
  Country: None (occurrence: None)
  Receive Date: 20110708
  Receipt Date: 20101104
  Transmission Date: 20111222
  Serious: No
  Sender: FDA-Public Use
  Company Number: US-GLAXOSMITHKLINE-A0890894A

PATIENT
  Age: 54 Year
  Sex: Female

DRUGS (2)
  1. FLOVENT [Suspect]
     Indication: ASTHMA
     Dosage: 2PUFF TWICE PER DAY
     Route: 055
     Dates: start: 20101001, end: 20101001
  2. VENTOLIN HFA [Concomitant]

REACTIONS (2)
  - CONDITION AGGRAVATED [None]
  - ILL-DEFINED DISORDER [None]
